FAERS Safety Report 5262384-4 (Version None)
Quarter: 2007Q1

REPORT INFORMATION
  Report Type: 
  Country: None (occurrence: None)
  Receive Date: 20061208
  Receipt Date: 20060215
  Transmission Date: 20070707
  Serious: Yes (Hospitalization)
  Sender: FDA-Public Use
  Company Number: 2006UW02955

PATIENT
  Age: 69 Year
  Sex: Male

DRUGS (3)
  1. NEXIUM [Suspect]
  2. CRESTOR [Suspect]
     Dosage: 20 MG PO
     Route: 048
  3. ASPIRIN [Suspect]

REACTIONS (1)
  - PANCREATITIS [None]
